FAERS Safety Report 17649384 (Version 3)
Quarter: 2020Q3

REPORT INFORMATION
  Report Type: Report from Study
  Country: US (occurrence: US)
  Receive Date: 20200409
  Receipt Date: 20200818
  Transmission Date: 20201102
  Serious: No
  Sender: FDA-Public Use
  Company Number: NVSC2020US093419

PATIENT
  Sex: Female

DRUGS (1)
  1. ENTRESTO [Suspect]
     Active Substance: SACUBITRIL\VALSARTAN
     Indication: CARDIAC FAILURE
     Dosage: 24.26 MG, BID (INCREASED DOSE: 49.51MG)
     Route: 048
     Dates: start: 20200401

REACTIONS (4)
  - Rhinorrhoea [Unknown]
  - Hypotension [Unknown]
  - Blood pressure decreased [Unknown]
  - Heart rate decreased [Unknown]
